FAERS Safety Report 8598252-X (Version None)
Quarter: 2012Q3

REPORT INFORMATION
  Report Type: 
  Country: None (occurrence: None)
  Receive Date: 20120816
  Receipt Date: 20120807
  Transmission Date: 20120928
  Serious: Yes (Hospitalization)
  Sender: FDA-Public Use
  Company Number: JP-ASTRAZENECA-2012SE39225

PATIENT
  Age: 58 Year
  Sex: Female

DRUGS (1)
  1. FASLODEX [Suspect]
     Route: 030
     Dates: start: 20120601

REACTIONS (5)
  - DECREASED APPETITE [None]
  - VOMITING [None]
  - HOT FLUSH [None]
  - ASTHENIA [None]
  - ASCITES [None]
